FAERS Safety Report 6212477-X (Version None)
Quarter: 2009Q2

REPORT INFORMATION
  Report Type: 
  Country: None (occurrence: None)
  Receive Date: 20090603
  Receipt Date: 20090525
  Transmission Date: 20091009
  Serious: Yes (Hospitalization, Other)
  Sender: FDA-Public Use
  Company Number: FR-JNJFOC-20080205357

PATIENT
  Age: 44 Year
  Sex: Male
  Weight: 105 kg

DRUGS (10)
  1. REMICADE [Suspect]
     Dosage: 6TH INFUSION
     Route: 042
  2. REMICADE [Suspect]
     Dosage: 5TH INFUSION
     Route: 042
  3. REMICADE [Suspect]
     Dosage: 4TH INFUSION
     Route: 042
  4. REMICADE [Suspect]
     Dosage: 3RD INFUSION
     Route: 042
  5. REMICADE [Suspect]
     Dosage: 2ND INFUSION
     Route: 042
  6. REMICADE [Suspect]
     Indication: PSORIATIC ARTHROPATHY
     Dosage: 1ST INFUSION
     Route: 042
  7. NOVATREX [Suspect]
     Indication: PSORIATIC ARTHROPATHY
  8. DIAMICRON [Concomitant]
     Indication: DIABETES MELLITUS
     Route: 048
  9. LIPANTHYL [Concomitant]
     Indication: HYPERCHOLESTEROLAEMIA
     Route: 048
  10. SORIATANE [Concomitant]

REACTIONS (5)
  - ANORECTAL DISORDER [None]
  - ARTHRALGIA [None]
  - LIPOMA [None]
  - LYMPH NODE TUBERCULOSIS [None]
  - PSORIASIS [None]
